FAERS Safety Report 6968245-4 (Version None)
Quarter: 2010Q3

REPORT INFORMATION
  Report Type: 
  Country: None (occurrence: None)
  Receive Date: 20100907
  Receipt Date: 20100826
  Transmission Date: 20110219
  Serious: No
  Sender: FDA-Public Use
  Company Number: US-JNJFOC-20100900787

PATIENT
  Sex: Female

DRUGS (3)
  1. INVEGA [Suspect]
     Indication: BIPOLAR DISORDER
     Route: 048
  2. RISPERDAL [Suspect]
     Indication: BIPOLAR DISORDER
     Route: 048
  3. ASPIRIN [Concomitant]

REACTIONS (5)
  - BREAST DISCHARGE [None]
  - BREAST PAIN [None]
  - BREAST SWELLING [None]
  - PRURITUS GENERALISED [None]
  - SKIN HAEMORRHAGE [None]
